FAERS Safety Report 9785960 (Version 2)
Quarter: 2014Q1

REPORT INFORMATION
  Report Type: Spontaneous
  Country: US (occurrence: None)
  Receive Date: 20131224
  Receipt Date: 20140113
  Transmission Date: 20141002
  Serious: Yes (Other)
  Sender: FDA-Public Use
  Company Number: 2013P1021915

PATIENT
  Age: 28 Year
  Sex: Female

DRUGS (1)
  1. MYORISAN [Suspect]
     Indication: ACNE
     Dates: start: 20131126, end: 2013

REACTIONS (2)
  - Depression [None]
  - Condition aggravated [None]
